FAERS Safety Report 20851835 (Version 3)
Quarter: 2022Q4

REPORT INFORMATION
  Report Type: Report from Study
  Country: US (occurrence: None)
  Receive Date: 20220520
  Receipt Date: 20221122
  Transmission Date: 20230113
  Serious: Yes (Hospitalization)
  Sender: FDA-Public Use
  Company Number: US-Merck Healthcare KGaA-9322116

PATIENT
  Sex: Male

DRUGS (2)
  1. REBIF [Suspect]
     Active Substance: INTERFERON BETA-1A
     Indication: Multiple sclerosis
     Dosage: REBIJECT II/MANUAL
     Route: 058
     Dates: start: 20110606
  2. COVID-19 VACCINE [Concomitant]
     Indication: COVID-19 immunisation

REACTIONS (3)
  - Atrial fibrillation [Unknown]
  - Blood pressure increased [Recovering/Resolving]
  - Blood cholesterol abnormal [Recovering/Resolving]
